FAERS Safety Report 9848096 (Version 8)
Quarter: 2014Q2

REPORT INFORMATION
  Report Type: Report from Study
  Country: FR (occurrence: FR)
  Receive Date: 20140128
  Receipt Date: 20140411
  Transmission Date: 20141212
  Serious: Yes (Other)
  Sender: FDA-Public Use
  Company Number: FR-VERTEX PHARMACEUTICALS INC-2014-000406

PATIENT
  Sex: Female

DRUGS (4)
  1. TELAPREVIR [Suspect]
     Dosage: UNK
     Route: 048
  2. COPEGUS [Suspect]
     Indication: PRODUCT USED FOR UNKNOWN INDICATION
     Dosage: UNK
  3. PEGASYS [Suspect]
     Indication: PRODUCT USED FOR UNKNOWN INDICATION
     Dosage: UNK
  4. RIBAVIRIN [Suspect]
     Indication: PRODUCT USED FOR UNKNOWN INDICATION
     Dosage: UNK
     Route: 065

REACTIONS (23)
  - Depression [Unknown]
  - Anxiety [Unknown]
  - Red blood cell count decreased [Unknown]
  - Haemoglobin decreased [Unknown]
  - Erythema [Unknown]
  - Pruritus generalised [Recovered/Resolved]
  - Acne [Unknown]
  - Alopecia [Unknown]
  - Myalgia [Unknown]
  - Insomnia [Unknown]
  - Dyspnoea [Unknown]
  - Nervousness [Unknown]
  - Dry throat [Not Recovered/Not Resolved]
  - Oropharyngeal pain [Unknown]
  - Headache [Unknown]
  - Abnormal sleep-related event [Unknown]
  - Mood swings [Unknown]
  - Weight decreased [Unknown]
  - Movement disorder [Unknown]
  - Decreased appetite [Unknown]
  - Tremor [Unknown]
  - Fatigue [Unknown]
  - Platelet count decreased [Unknown]
